FAERS Safety Report 12012124 (Version 1)
Quarter: 2016Q1

REPORT INFORMATION
  Report Type: Spontaneous
  Country: US (occurrence: US)
  Receive Date: 20160205
  Receipt Date: 20160205
  Transmission Date: 20160526
  Serious: No
  Sender: FDA-Public Use
  Company Number: US-ABBVIE-15K-163-1449477-00

PATIENT
  Age: 61 Year
  Sex: Female

DRUGS (1)
  1. HUMIRA [Suspect]
     Active Substance: ADALIMUMAB
     Indication: PSORIASIS
     Route: 058

REACTIONS (6)
  - Rash [Unknown]
  - Contusion [Unknown]
  - Wrong technique in product usage process [Unknown]
  - Skin irritation [Unknown]
  - Rash macular [Unknown]
  - Fall [Unknown]

NARRATIVE: CASE EVENT DATE: 201508
